FAERS Safety Report 23595690 (Version 1)
Quarter: 2024Q1

REPORT INFORMATION
  Report Type: Spontaneous
  Country: US (occurrence: None)
  Receive Date: 20240304
  Receipt Date: 20240304
  Transmission Date: 20240410
  Serious: Yes (Disabling)
  Sender: FDA-Public Use
  Company Number: None

PATIENT
  Age: 36 Year
  Sex: Male
  Weight: 85.5 kg

DRUGS (1)
  1. EMGALITY [Suspect]
     Active Substance: GALCANEZUMAB-GNLM
     Indication: Headache
     Dates: start: 20240227

REACTIONS (5)
  - Nausea [None]
  - Abdominal discomfort [None]
  - Eructation [None]
  - Sensation of foreign body [None]
  - Gastritis [None]

NARRATIVE: CASE EVENT DATE: 20240227
